FAERS Safety Report 25319963 (Version 1)
Quarter: 2025Q2

REPORT INFORMATION
  Report Type: Spontaneous
  Country: US (occurrence: None)
  Receive Date: 20250515
  Receipt Date: 20250515
  Transmission Date: 20250717
  Serious: Yes (Other)
  Sender: FDA-CTU
  Company Number: None

PATIENT
  Age: 59 Year
  Sex: Male

DRUGS (1)
  1. GLATIRAMER ACETATE [Suspect]
     Active Substance: GLATIRAMER ACETATE
     Indication: Multiple sclerosis
     Dosage: FREQUENCY : 3 TIMES A WEEK;?

REACTIONS (3)
  - Injection site pain [None]
  - Burning sensation [None]
  - Back pain [None]
